FAERS Safety Report 12632676 (Version 2)
Quarter: 2016Q3

REPORT INFORMATION
  Report Type: Spontaneous
  Country: US (occurrence: US)
  Receive Date: 20160808
  Receipt Date: 20160808
  Transmission Date: 20161109
  Serious: No
  Sender: FDA-Public Use
  Company Number: US-BEH-2015056491

PATIENT
  Sex: Female
  Weight: 76 kg

DRUGS (15)
  1. LASIX [Concomitant]
     Active Substance: FUROSEMIDE
  2. CARDIZEM LA [Concomitant]
     Active Substance: DILTIAZEM HYDROCHLORIDE
  3. DIPHENHYDRAMINE. [Concomitant]
     Active Substance: DIPHENHYDRAMINE
  4. LIDOCAINE. [Concomitant]
     Active Substance: LIDOCAINE
  5. SYNTHROID [Concomitant]
     Active Substance: LEVOTHYROXINE SODIUM
  6. UROCIT-K [Concomitant]
     Active Substance: POTASSIUM CITRATE
  7. PRILOSEC [Concomitant]
     Active Substance: OMEPRAZOLE MAGNESIUM
  8. IPRATROPIUM-ALBUTEROL [Concomitant]
     Active Substance: ALBUTEROL\IPRATROPIUM
  9. VENTOLIN [Concomitant]
     Active Substance: ALBUTEROL SULFATE
  10. TYLENOL-CODEINE NO.3 [Concomitant]
  11. EPIPEN [Concomitant]
     Active Substance: EPINEPHRINE
  12. HIZENTRA [Suspect]
     Active Substance: HUMAN IMMUNOGLOBULIN G
     Route: 058
  13. HIZENTRA [Suspect]
     Active Substance: HUMAN IMMUNOGLOBULIN G
     Indication: IMMUNODEFICIENCY COMMON VARIABLE
     Route: 058
  14. HIZENTRA [Suspect]
     Active Substance: HUMAN IMMUNOGLOBULIN G
     Route: 058
     Dates: start: 20151023
  15. ACETAMINOPHEN. [Concomitant]
     Active Substance: ACETAMINOPHEN

REACTIONS (6)
  - Administration site pain [Recovered/Resolved]
  - Vomiting [Recovered/Resolved]
  - Headache [Recovered/Resolved]
  - Myalgia [Recovered/Resolved]
  - Administration site erythema [Recovered/Resolved]
  - Nausea [Recovered/Resolved]
